FAERS Safety Report 8544164-7 (Version None)
Quarter: 2012Q3

REPORT INFORMATION
  Report Type: 
  Country: None (occurrence: None)
  Receive Date: 20120727
  Receipt Date: 20120717
  Transmission Date: 20120928
  Serious: Yes (Hospitalization, Other)
  Sender: FDA-Public Use
  Company Number: FR-INCYTE CORPORATION-2012IN000811

PATIENT
  Sex: Female
  Weight: 59 kg

DRUGS (9)
  1. INCB018424 [Suspect]
     Dosage: 5 MG, BID
     Route: 048
     Dates: start: 20120430, end: 20120503
  2. INCB018424 [Suspect]
     Dosage: 20 MG, BID
     Route: 048
     Dates: start: 20111220, end: 20120430
  3. TINZAPARIN SODIUM [Concomitant]
     Dosage: UNK
     Dates: start: 20090225, end: 20120503
  4. FOLIC ACID [Concomitant]
     Dosage: UNK
     Dates: start: 20090201, end: 20120503
  5. SPIRONOLACTONE [Concomitant]
     Dosage: UNK
     Dates: start: 20070101, end: 20120509
  6. LEVETIRACETAM [Concomitant]
     Dosage: UNK
     Dates: start: 20020101
  7. IRBESARTAN [Concomitant]
     Dosage: UNK
     Dates: start: 20090225, end: 20120502
  8. INCB018424 [Suspect]
     Indication: MYELOFIBROSIS
     Dosage: 15 MG, BID
     Dates: start: 20110706, end: 20111220
  9. LAMOTRIGINE [Concomitant]
     Dosage: UNK
     Dates: start: 20050101, end: 20120503

REACTIONS (4)
  - PANCYTOPENIA [None]
  - THROMBOCYTOPENIA [None]
  - HAEMATEMESIS [None]
  - NEUTROPENIA [None]
